FAERS Safety Report 23566036 (Version 1)
Quarter: 2024Q1

REPORT INFORMATION
  Report Type: Spontaneous
  Country: US (occurrence: None)
  Receive Date: 20240225
  Receipt Date: 20240225
  Transmission Date: 20240410
  Serious: Yes (Other)
  Sender: FDA-Public Use
  Company Number: None

PATIENT
  Age: 33 Year
  Sex: Female
  Weight: 84.6 kg

DRUGS (13)
  1. RYSTIGGO [Suspect]
     Active Substance: ROZANOLIXIZUMAB-NOLI
     Indication: Myasthenia gravis
     Dosage: OTHER FREQUENCY : WEEKLY FOR 6 WEEKS;?
     Route: 058
     Dates: start: 20240123, end: 20240129
  2. NOVOLOG [Concomitant]
     Active Substance: INSULIN ASPART
     Dates: start: 20231221
  3. CYCLOBENZAPRINE [Concomitant]
     Active Substance: CYCLOBENZAPRINE
     Dates: start: 20231221
  4. TOPAMAX [Concomitant]
     Active Substance: TOPIRAMATE
     Dates: start: 20231221
  5. TRAZODONE HCL [Concomitant]
     Active Substance: TRAZODONE HYDROCHLORIDE
     Dates: start: 20231221
  6. JUNEL FE 1/20 [Concomitant]
     Active Substance: ETHINYL ESTRADIOL\NORETHINDRONE ACETATE
     Dates: start: 20231221
  7. WELLBUTRIN XL [Concomitant]
     Active Substance: BUPROPION HYDROCHLORIDE
     Dates: start: 20231221
  8. LIPITOR [Concomitant]
     Active Substance: ATORVASTATIN CALCIUM
     Dates: start: 20231221
  9. SYNTHROID [Concomitant]
     Active Substance: LEVOTHYROXINE SODIUM
     Dates: start: 20231221
  10. METFORMIN [Concomitant]
     Active Substance: METFORMIN HYDROCHLORIDE
     Dates: start: 20231221
  11. FOLIC ACID [Concomitant]
     Active Substance: FOLIC ACID
     Dates: start: 20231221
  12. MELOXICAM [Concomitant]
     Active Substance: MELOXICAM
     Dates: start: 20231221
  13. METHOTREXATE SODIUM [Concomitant]
     Active Substance: METHOTREXATE SODIUM
     Dates: start: 20231221

REACTIONS (4)
  - Migraine [None]
  - Nausea [None]
  - Musculoskeletal stiffness [None]
  - Infusion related reaction [None]

NARRATIVE: CASE EVENT DATE: 20240129
